FAERS Safety Report 24984358 (Version 1)
Quarter: 2025Q1

REPORT INFORMATION
  Report Type: Report from Study
  Country: US (occurrence: US)
  Receive Date: 20250219
  Receipt Date: 20250219
  Transmission Date: 20250408
  Serious: Yes (Other)
  Sender: TAKEDA
  Company Number: US-TAKEDA-US202018462

PATIENT
  Age: 55 Year
  Sex: Female

DRUGS (2)
  1. HUMAN IMMUNOGLOBULIN G [Suspect]
     Active Substance: HUMAN IMMUNOGLOBULIN G
     Indication: Primary immunodeficiency syndrome
     Dosage: 50 GRAM, MONTHLY
  2. HUMAN IMMUNOGLOBULIN G [Suspect]
     Active Substance: HUMAN IMMUNOGLOBULIN G
     Indication: Hypogammaglobulinaemia

REACTIONS (19)
  - Arteriovenous malformation [Unknown]
  - Malaise [Unknown]
  - Impaired healing [Unknown]
  - Sinus disorder [Unknown]
  - Blood pressure decreased [Unknown]
  - COVID-19 [Recovering/Resolving]
  - Illness [Unknown]
  - Skin laceration [Unknown]
  - Speech disorder [Unknown]
  - Product dose omission issue [Unknown]
  - Fall [Unknown]
  - Limb injury [Unknown]
  - Ligament sprain [Unknown]
  - Feeling abnormal [Unknown]
  - Pain in extremity [Unknown]
  - Cough [Unknown]
  - Hypersensitivity [Unknown]
  - Arthralgia [Unknown]
  - Headache [Unknown]

NARRATIVE: CASE EVENT DATE: 20200825
